FAERS Safety Report 4408190-1 (Version None)
Quarter: 2004Q3

REPORT INFORMATION
  Report Type: 
  Country: None (occurrence: None)
  Receive Date: 20040722
  Receipt Date: 20040712
  Transmission Date: 20050211
  Serious: Yes (Disabling)
  Sender: FDA-Public Use
  Company Number: JP-JNJFOC-20040702621

PATIENT
  Age: 75 Year
  Sex: Female

DRUGS (6)
  1. LEVOFLOXACIN [Suspect]
     Indication: BRONCHITIS
     Dosage: 500 MG, ORAL
     Route: 048
     Dates: start: 20040612, end: 20040617
  2. OZOTHINE (TURPENTINE OIL) SPRAY [Concomitant]
  3. CALMIXENE (PIMETHIXENE) [Concomitant]
  4. VENTOLIN [Concomitant]
  5. HEXAPNEUMINE (HEXAPNEUMINE TABLETS) [Concomitant]
  6. CELESTONE [Concomitant]

REACTIONS (1)
  - ANOSMIA [None]
